FAERS Safety Report 18182349 (Version 1)
Quarter: 2020Q3

REPORT INFORMATION
  Report Type: Spontaneous
  Country: BR (occurrence: BR)
  Receive Date: 20200821
  Receipt Date: 20200821
  Transmission Date: 20201103
  Serious: Yes (Other)
  Sender: FDA-Public Use
  Company Number: BR-MYLANLABS-2020M1072540

PATIENT
  Sex: Female

DRUGS (7)
  1. CARBOPLATIN. [Suspect]
     Active Substance: CARBOPLATIN
     Indication: PAPILLARY SEROUS ENDOMETRIAL CARCINOMA
     Dosage: 6 CYCLES
     Dates: end: 201602
  2. PEMBROLIZUMAB. [Suspect]
     Active Substance: PEMBROLIZUMAB
     Indication: PAPILLARY SEROUS ENDOMETRIAL CARCINOMA
     Dosage: UNK
  3. LENVATINIB [Suspect]
     Active Substance: LENVATINIB
     Indication: PAPILLARY SEROUS ENDOMETRIAL CARCINOMA
     Dosage: UNK
  4. DOXORUBICIN MYLAN [Suspect]
     Active Substance: DOXORUBICIN
     Indication: PAPILLARY SEROUS ENDOMETRIAL CARCINOMA
     Dosage: EVERY 4 WEEKS, HAVING DONE ALREADY 2 CYCLES
  5. PACLITAXEL. [Suspect]
     Active Substance: PACLITAXEL
     Indication: PAPILLARY SEROUS ENDOMETRIAL CARCINOMA
     Dosage: 6 CYCLES
     Dates: end: 201602
  6. CARBOPLATIN. [Suspect]
     Active Substance: CARBOPLATIN
     Dosage: EVERY 4 WEEKS, HAVING DONE ALREADY 2 CYCLES
  7. TRASTUZUMAB. [Suspect]
     Active Substance: TRASTUZUMAB
     Indication: PAPILLARY SEROUS ENDOMETRIAL CARCINOMA
     Dosage: 6 CYCLES

REACTIONS (1)
  - Disease progression [Unknown]
